FAERS Safety Report 24117263 (Version 2)
Quarter: 2024Q3

REPORT INFORMATION
  Report Type: Spontaneous
  Country: US (occurrence: US)
  Receive Date: 20240722
  Receipt Date: 20240820
  Transmission Date: 20241017
  Serious: No
  Sender: FDC LIMITED
  Company Number: US-FDC-2024USSPO00464

PATIENT
  Sex: Female

DRUGS (3)
  1. TIMOLOL MALEATE [Suspect]
     Active Substance: TIMOLOL MALEATE
     Indication: Glaucoma
     Route: 047
  2. RESTASIS [Suspect]
     Active Substance: CYCLOSPORINE
     Indication: Dry eye
     Route: 065
  3. Rizoka [Concomitant]
     Indication: Glaucoma
     Route: 065

REACTIONS (3)
  - Intraocular pressure increased [Recovered/Resolved]
  - Eye irritation [Recovered/Resolved]
  - Drug interaction [Unknown]
